FAERS Safety Report 16107868 (Version 2)
Quarter: 2019Q1

REPORT INFORMATION
  Report Type: Spontaneous
  Country: FR (occurrence: FR)
  Receive Date: 20190322
  Receipt Date: 20190328
  Transmission Date: 20190418
  Serious: Yes (Hospitalization, Disabling)
  Sender: FDA-Public Use
  Company Number: FR-ASTRAZENECA-2019SE43423

PATIENT
  Age: 682 Month
  Sex: Male

DRUGS (5)
  1. TAGRISSO [Suspect]
     Active Substance: OSIMERTINIB
     Indication: LUNG CARCINOMA CELL TYPE UNSPECIFIED STAGE 0
     Route: 048
     Dates: start: 201810
  2. LOPERAMIDE [Concomitant]
     Active Substance: LOPERAMIDE
  3. ALLOPURINOL. [Concomitant]
     Active Substance: ALLOPURINOL
  4. TRAMADOL. [Concomitant]
     Active Substance: TRAMADOL
  5. TAGRISSO [Suspect]
     Active Substance: OSIMERTINIB
     Indication: LUNG CARCINOMA CELL TYPE UNSPECIFIED STAGE 0
     Route: 048

REACTIONS (6)
  - Paronychia [Unknown]
  - Localised infection [Recovered/Resolved with Sequelae]
  - Mobility decreased [Unknown]
  - Diarrhoea [Unknown]
  - Nosocomial infection [Recovered/Resolved with Sequelae]
  - Skin discolouration [Unknown]

NARRATIVE: CASE EVENT DATE: 201901
